FAERS Safety Report 9348457 (Version 3)
Quarter: 2013Q2

REPORT INFORMATION
  Report Type: Spontaneous
  Country: CN (occurrence: CN)
  Receive Date: 20130614
  Receipt Date: 20130624
  Transmission Date: 20140414
  Serious: Yes (Death)
  Sender: FDA-Public Use
  Company Number: CN-JNJFOC-20130601640

PATIENT
  Age: 64 Year
  Sex: Female

DRUGS (10)
  1. DECITABINE [Suspect]
     Indication: ACUTE MYELOMONOCYTIC LEUKAEMIA
     Dosage: DAY 1-3
     Route: 042
  2. CYTOSINE ARABINOSIDE [Suspect]
     Indication: SARCOMA
     Route: 058
  3. DOXORUBICIN [Suspect]
     Indication: ACUTE MYELOMONOCYTIC LEUKAEMIA
     Dosage: DAY 1
     Route: 042
  4. ACLARUBICIN [Suspect]
     Indication: SARCOMA
     Dosage: 5-7 MG/M2
     Route: 042
  5. IDARUBICIN [Suspect]
     Indication: SARCOMA
     Dosage: IA REGIMEN, DAY 1-3
     Route: 042
  6. CYTARABINE [Suspect]
     Indication: SARCOMA
     Route: 058
  7. CYTARABINE [Suspect]
     Indication: ACUTE MYELOMONOCYTIC LEUKAEMIA
     Dosage: IA REGIMEN, DAY 1-5
     Route: 042
  8. VINDESINE [Suspect]
     Indication: SARCOMA
     Route: 042
  9. DEXAMETHASONE [Suspect]
     Indication: SARCOMA
     Route: 042
  10. G-CSF [Concomitant]
     Route: 065

REACTIONS (3)
  - Disease progression [Fatal]
  - Therapeutic response decreased [Unknown]
  - Off label use [Unknown]
